FAERS Safety Report 24558216 (Version 1)
Quarter: 2024Q4

REPORT INFORMATION
  Report Type: Spontaneous
  Country: GB (occurrence: GB)
  Receive Date: 20241028
  Receipt Date: 20241028
  Transmission Date: 20250114
  Serious: Yes (Other)
  Sender: ORGANON
  Company Number: None

PATIENT
  Age: 77 Year
  Sex: Female
  Weight: 73 kg

DRUGS (1)
  1. MIRTAZAPINE [Suspect]
     Active Substance: MIRTAZAPINE
     Indication: Adverse drug reaction
     Dosage: 20 MILLIGRAM (NIGHTLY)
     Dates: end: 202403

REACTIONS (1)
  - Joint laxity [Recovered/Resolved with Sequelae]

NARRATIVE: CASE EVENT DATE: 20240101
